FAERS Safety Report 19450850 (Version 1)
Quarter: 2021Q2

REPORT INFORMATION
  Report Type: Report from Study
  Country: PL (occurrence: PL)
  Receive Date: 20210622
  Receipt Date: 20210622
  Transmission Date: 20210717
  Serious: Yes (Other)
  Sender: FDA-Public Use
  Company Number: NVSC2021PL130848

PATIENT

DRUGS (1)
  1. METFORMIN [Suspect]
     Active Substance: METFORMIN HYDROCHLORIDE
     Indication: PRODUCT USED FOR UNKNOWN INDICATION
     Dosage: UNK
     Route: 065

REACTIONS (10)
  - Blindness [Unknown]
  - Diabetic neuropathy [Unknown]
  - Hypoaesthesia [Unknown]
  - Diabetes mellitus inadequate control [Unknown]
  - Sensory loss [Unknown]
  - Drug ineffective [Unknown]
  - Diabetic retinopathy [Unknown]
  - Drug intolerance [Unknown]
  - Hyperglycaemia [Unknown]
  - Hypoglycaemia [Unknown]
